FAERS Safety Report 14540097 (Version 2)
Quarter: 2018Q2

REPORT INFORMATION
  Report Type: Spontaneous
  Country: US (occurrence: US)
  Receive Date: 20180216
  Receipt Date: 20180402
  Transmission Date: 20180711
  Serious: Yes (Other)
  Sender: FDA-Public Use
  Company Number: US-LEXICON PHARMACEUTICALS, INC-18-1606-00158

PATIENT
  Sex: Male

DRUGS (1)
  1. TELOTRISTAT ETHYL [Suspect]
     Active Substance: TELOTRISTAT ETHYL
     Indication: CARCINOID TUMOUR
     Route: 048
     Dates: start: 20171215

REACTIONS (6)
  - Rectal haemorrhage [Recovered/Resolved]
  - Ascites [Not Recovered/Not Resolved]
  - Colitis [Not Recovered/Not Resolved]
  - Decreased appetite [Recovered/Resolved]
  - Proctalgia [Recovered/Resolved]
  - Full blood count decreased [Recovered/Resolved]
